FAERS Safety Report 7633339-7 (Version None)
Quarter: 2011Q3

REPORT INFORMATION
  Report Type: 
  Country: None (occurrence: None)
  Receive Date: 20110725
  Receipt Date: 20100824
  Transmission Date: 20111222
  Serious: Yes (Other)
  Sender: FDA-Public Use
  Company Number: US-BRISTOL-MYERS SQUIBB COMPANY-15217326

PATIENT
  Age: 43 Year
  Sex: Female

DRUGS (3)
  1. SPRYCEL [Suspect]
     Dates: start: 20100104
  2. GLEEVEC [Suspect]
     Dates: start: 20060516, end: 20100104
  3. LYRICA [Suspect]
     Dosage: FORM:HARD CAPSULE

REACTIONS (1)
  - HEADACHE [None]
